FAERS Safety Report 9846923 (Version 2)
Quarter: 2014Q2

REPORT INFORMATION
  Report Type: Spontaneous
  Country: US (occurrence: US)
  Receive Date: 20140127
  Receipt Date: 20140415
  Transmission Date: 20141212
  Serious: No
  Sender: FDA-Public Use
  Company Number: US-009507513-1401USA012164

PATIENT
  Sex: Female
  Weight: 56.69 kg

DRUGS (7)
  1. OXYTROL FOR WOMEN [Suspect]
     Indication: HYPERTONIC BLADDER
     Dosage: 1 DF, Q4D
     Route: 062
  2. CORGARD [Concomitant]
     Indication: HYPERTENSION
     Dosage: UNK, UNKNOWN
  3. TRICOR (FENOFIBRATE) [Concomitant]
     Indication: BLOOD CHOLESTEROL INCREASED
     Dosage: UNK, UNKNOWN
  4. OMEPRAZOLE [Concomitant]
     Indication: DYSPEPSIA
     Dosage: UNK, UNKNOWN
  5. GABAPENTIN [Concomitant]
     Indication: NERVE INJURY
     Dosage: UNK, UNKNOWN
  6. POTASSIUM (UNSPECIFIED) [Concomitant]
     Dosage: UNK, UNKNOWN
  7. VITAMIN D (UNSPECIFIED) [Concomitant]
     Dosage: UNK, UNKNOWN

REACTIONS (1)
  - Pruritus [Recovered/Resolved]
